FAERS Safety Report 12763674 (Version 2)
Quarter: 2016Q4

REPORT INFORMATION
  Report Type: Spontaneous
  Country: US (occurrence: US)
  Receive Date: 20160920
  Receipt Date: 20161017
  Transmission Date: 20170207
  Serious: Yes (Death, Hospitalization)
  Sender: FDA-Public Use
  Company Number: US-INSYS THERAPEUTICS, INC-INS201609-000490

PATIENT
  Age: 55 Year
  Sex: Female
  Weight: 52.8 kg

DRUGS (4)
  1. SUBSYS [Suspect]
     Active Substance: FENTANYL
     Indication: MONONEUROPATHY
     Route: 060
     Dates: start: 20160630, end: 20160902
  2. MORPHINE [Concomitant]
     Active Substance: MORPHINE
  3. SUBSYS [Suspect]
     Active Substance: FENTANYL
     Route: 060
  4. DOXIL [Concomitant]
     Active Substance: DOXORUBICIN HYDROCHLORIDE

REACTIONS (1)
  - Neoplasm progression [Fatal]

NARRATIVE: CASE EVENT DATE: 20160902
